FAERS Safety Report 11607362 (Version 4)
Quarter: 2015Q4

REPORT INFORMATION
  Report Type: Spontaneous
  Country: FI (occurrence: FI)
  Receive Date: 20151007
  Receipt Date: 20151029
  Transmission Date: 20160304
  Serious: Yes (Other)
  Sender: FDA-Public Use
  Company Number: FI-AMGEN-FINSP2015102288

PATIENT
  Age: 74 Year
  Sex: Male
  Weight: 74.6 kg

DRUGS (3)
  1. ENZALUTAMIDE [Concomitant]
     Active Substance: ENZALUTAMIDE
  2. ABIRATERONE [Concomitant]
     Active Substance: ABIRATERONE
  3. XGEVA [Suspect]
     Active Substance: DENOSUMAB
     Indication: PRODUCT USED FOR UNKNOWN INDICATION
     Dosage: 120 MG, Q3MO
     Route: 058

REACTIONS (1)
  - Myocardial infarction [Unknown]

NARRATIVE: CASE EVENT DATE: 20150509
